FAERS Safety Report 6769073-5 (Version None)
Quarter: 2010Q2

REPORT INFORMATION
  Report Type: 
  Country: None (occurrence: None)
  Receive Date: 20100610
  Receipt Date: 20100604
  Transmission Date: 20101027
  Serious: Yes (Hospitalization)
  Sender: FDA-Public Use
  Company Number: 2010SP031422

PATIENT
  Age: 70 Year
  Sex: Male

DRUGS (3)
  1. REBETOL [Suspect]
     Indication: HEPATITIS C
     Dosage: ; PO
     Route: 048
     Dates: start: 20091220, end: 20100530
  2. INTERFERON [Suspect]
     Indication: HEPATITIS C
     Dosage: 6 MIU; QD; IV, 6 MIU; TIW; IV
     Route: 042
     Dates: end: 20100530
  3. INTERFERON [Suspect]
     Indication: HEPATITIS C
     Dosage: 6 MIU; QD; IV, 6 MIU; TIW; IV
     Route: 042
     Dates: start: 20091220

REACTIONS (1)
  - CEREBRAL INFARCTION [None]
